FAERS Safety Report 11659412 (Version 1)
Quarter: 2015Q4

REPORT INFORMATION
  Report Type: Spontaneous
  Country: JP (occurrence: JP)
  Receive Date: 20151026
  Receipt Date: 20151026
  Transmission Date: 20160304
  Serious: Yes (Other)
  Sender: FDA-Public Use
  Company Number: JP-ROCHE-1603179

PATIENT
  Age: 64 Year
  Sex: Female

DRUGS (4)
  1. LUCENTIS [Suspect]
     Active Substance: RANIBIZUMAB
     Route: 050
     Dates: start: 20121126, end: 20121126
  2. AFLIBERCEPT [Concomitant]
     Active Substance: AFLIBERCEPT
  3. LUCENTIS [Suspect]
     Active Substance: RANIBIZUMAB
     Indication: MACULAR DEGENERATION
     Route: 050
     Dates: start: 20121030
  4. LUCENTIS [Suspect]
     Active Substance: RANIBIZUMAB
     Indication: AGE-RELATED MACULAR DEGENERATION
     Dosage: MOST RECENT DOSE PRIOR TO SAE.
     Route: 050
     Dates: start: 20120904

REACTIONS (1)
  - Detachment of retinal pigment epithelium [Not Recovered/Not Resolved]

NARRATIVE: CASE EVENT DATE: 201210
